FAERS Safety Report 8838831 (Version 1)
Quarter: 2012Q4

REPORT INFORMATION
  Report Type: Spontaneous
  Country: US (occurrence: None)
  Receive Date: 20121011
  Receipt Date: 20121011
  Transmission Date: 20130627
  Serious: Yes (Life-Threatening, Hospitalization, Disabling)
  Sender: FDA-Public Use
  Company Number: None

PATIENT
  Age: 69 Year
  Sex: Male
  Weight: 110.68 kg

DRUGS (1)
  1. TRI-COR 145MG ABBOTT [Suspect]
     Indication: TRIGLYCERIDE INCREASED
     Dosage: 1 tablet at dinner- po
     Route: 048
     Dates: start: 20120906, end: 20121002

REACTIONS (6)
  - Abdominal pain upper [None]
  - Hyperhidrosis [None]
  - Heart rate decreased [None]
  - Pancreatitis [None]
  - Renal failure [None]
  - Renal injury [None]
